FAERS Safety Report 12054391 (Version 1)
Quarter: 2016Q1

REPORT INFORMATION
  Report Type: Spontaneous
  Country: KR (occurrence: KR)
  Receive Date: 20160209
  Receipt Date: 20160209
  Transmission Date: 20160526
  Serious: Yes (Hospitalization)
  Sender: FDA-Public Use
  Company Number: KR-JNJFOC-20160204837

PATIENT
  Age: 69 Year
  Sex: Male

DRUGS (4)
  1. INDENOL [Concomitant]
     Active Substance: PROPRANOLOL HYDROCHLORIDE
     Indication: ARRHYTHMIA
     Route: 048
  2. XARELTO [Suspect]
     Active Substance: RIVAROXABAN
     Indication: CEREBROVASCULAR ACCIDENT PROPHYLAXIS
     Route: 048
     Dates: start: 20151015, end: 201601
  3. XARELTO [Suspect]
     Active Substance: RIVAROXABAN
     Indication: ATRIAL FIBRILLATION
     Route: 048
     Dates: start: 20151015, end: 201601
  4. AZATHIOPRINE. [Concomitant]
     Active Substance: AZATHIOPRINE
     Route: 065

REACTIONS (5)
  - Hemiparesis [Recovered/Resolved]
  - Drug ineffective [Unknown]
  - Hypoaesthesia [Recovered/Resolved]
  - Angiogram abnormal [Recovered/Resolved]
  - Thalamic infarction [Recovered/Resolved]

NARRATIVE: CASE EVENT DATE: 20160118
